FAERS Safety Report 9679091 (Version 2)
Quarter: 2013Q4

REPORT INFORMATION
  Report Type: Report from Study
  Country: US (occurrence: US)
  Receive Date: 20131108
  Receipt Date: 20131108
  Transmission Date: 20140711
  Serious: Yes (Life-Threatening, Other)
  Sender: FDA-Public Use
  Company Number: US-ASTRAZENECA-2006UW08749

PATIENT
  Age: 41 Year
  Sex: Male

DRUGS (1)
  1. AZD6140 [Suspect]
     Route: 048
     Dates: start: 20060505

REACTIONS (4)
  - Sinus arrest [Recovered/Resolved]
  - Rhythm idioventricular [Recovered/Resolved]
  - Syncope [Recovered/Resolved]
  - Atrioventricular block [Recovered/Resolved]
